FAERS Safety Report 25005642 (Version 3)
Quarter: 2025Q2

REPORT INFORMATION
  Report Type: Spontaneous
  Country: US (occurrence: US)
  Receive Date: 20250224
  Receipt Date: 20250422
  Transmission Date: 20250716
  Serious: No
  Sender: SANOFI AVENTIS
  Company Number: US-SA-2025SA054429

PATIENT
  Age: 19 Year
  Sex: Male
  Weight: 65.91 kg

DRUGS (1)
  1. CERDELGA [Suspect]
     Active Substance: ELIGLUSTAT
     Indication: Gaucher^s disease
     Dosage: 84 MG, BID
     Route: 048
     Dates: start: 202410

REACTIONS (7)
  - Weight increased [Unknown]
  - Gastrooesophageal reflux disease [Unknown]
  - Hordeolum [Unknown]
  - Rash [Unknown]
  - Dyspepsia [Unknown]
  - Abdominal pain upper [Unknown]
  - Product dose omission in error [Unknown]

NARRATIVE: CASE EVENT DATE: 20250101
